FAERS Safety Report 24820361 (Version 1)
Quarter: 2025Q1

REPORT INFORMATION
  Report Type: Spontaneous
  Country: PT (occurrence: PT)
  Receive Date: 20250108
  Receipt Date: 20250108
  Transmission Date: 20250409
  Serious: Yes (Other)
  Sender: FRESENIUS KABI
  Company Number: None

PATIENT
  Age: 79 Year
  Sex: Male

DRUGS (4)
  1. GENTAMICIN SULFATE [Suspect]
     Active Substance: GENTAMICIN SULFATE
     Indication: Endocarditis
     Dosage: 200 MG 24/24H
     Route: 042
     Dates: start: 20241226, end: 20241230
  2. GENTAMICIN SULFATE [Suspect]
     Active Substance: GENTAMICIN SULFATE
     Indication: Abscess
  3. Flucloxacillin 2g Powder for solution for injection vial IM/IV [Fluclo [Concomitant]
     Indication: Endocarditis
     Dates: start: 20241220
  4. Flucloxacillin 2g Powder for solution for injection vial IM/IV [Fluclo [Concomitant]
     Indication: Abscess

REACTIONS (1)
  - Acute kidney injury [Recovering/Resolving]

NARRATIVE: CASE EVENT DATE: 20241228
